FAERS Safety Report 8348958-2 (Version None)
Quarter: 2012Q2

REPORT INFORMATION
  Report Type: 
  Country: None (occurrence: None)
  Receive Date: 20120508
  Receipt Date: 20120425
  Transmission Date: 20120825
  Serious: Yes (Hospitalization)
  Sender: FDA-Public Use
  Company Number: WAES 1204USA03717

PATIENT
  Age: 52 Year
  Sex: Male

DRUGS (2)
  1. LOPINAVIR AND RITONAVIR [Concomitant]
  2. ISENTRESS [Suspect]
     Indication: HIV INFECTION
     Dosage: 400 MG/BID PO
     Route: 048
     Dates: start: 20111102

REACTIONS (2)
  - DEHYDRATION [None]
  - GASTROENTERITIS [None]
